FAERS Safety Report 7003147-9 (Version None)
Quarter: 2010Q3

REPORT INFORMATION
  Report Type: 
  Country: None (occurrence: None)
  Receive Date: 20100920
  Receipt Date: 20100304
  Transmission Date: 20110219
  Serious: No
  Sender: FDA-Public Use
  Company Number: US-ASTRAZENECA-2010SE09528

PATIENT
  Age: 550 Month
  Sex: Male

DRUGS (3)
  1. SEROQUEL [Suspect]
     Indication: DEPRESSION
     Route: 048
     Dates: start: 20081201
  2. CELEXA [Concomitant]
     Indication: TRAUMATIC BRAIN INJURY
  3. ARICEPT [Concomitant]
     Indication: TRAUMATIC BRAIN INJURY

REACTIONS (2)
  - DEPRESSION [None]
  - DRUG DOSE OMISSION [None]
